FAERS Safety Report 10674417 (Version 1)
Quarter: 2014Q4

REPORT INFORMATION
  Report Type: Spontaneous
  Country: US (occurrence: None)
  Receive Date: 20141223
  Receipt Date: 20141223
  Transmission Date: 20150529
  Serious: Yes (Life-Threatening, Hospitalization)
  Sender: FDA-Public Use
  Company Number: None

PATIENT
  Age: 18 Year
  Sex: Female

DRUGS (1)
  1. PRACTI-PRODUCTS [Suspect]
     Active Substance: UNSPECIFIED INGREDIENT
     Indication: VIRAL INFECTION
     Dosage: ONCE INTRAVENOUS
     Route: 042
     Dates: start: 20141220

REACTIONS (3)
  - Product contamination physical [None]
  - Wrong drug administered [None]
  - Sepsis [None]

NARRATIVE: CASE EVENT DATE: 20141219
